FAERS Safety Report 17802773 (Version 1)
Quarter: 2020Q2

REPORT INFORMATION
  Report Type: Spontaneous
  Country: FI (occurrence: FI)
  Receive Date: 20200519
  Receipt Date: 20200519
  Transmission Date: 20200714
  Serious: Yes (Hospitalization, Other)
  Sender: FDA-Public Use
  Company Number: FI-BAUSCH-BL-2020-014417

PATIENT
  Age: 79 Year
  Sex: Male

DRUGS (2)
  1. PREDNISOLONE. [Suspect]
     Active Substance: PREDNISOLONE
     Indication: RHEUMATOID ARTHRITIS
     Dosage: HAD BEEN IN USE FOR ALMOST 40 YEARS
     Route: 065
  2. HYDROCORTISON TABLET, 5 MG (MILLIGR1 AM) [Suspect]
     Active Substance: HYDROCORTISONE
     Indication: ADRENAL INSUFFICIENCY
     Dosage: STARTED BETWEEN YEARS 1995-2005, DOSAGE FREQUENCY: 0.5 TABLET A DAY
     Route: 048

REACTIONS (14)
  - Lung disorder [Unknown]
  - Impaired healing [Unknown]
  - Insomnia [Unknown]
  - Asthma [Unknown]
  - Rheumatoid arthritis [Unknown]
  - Arthropathy [Unknown]
  - Hypertension [Unknown]
  - Idiopathic pulmonary fibrosis [Unknown]
  - Gastrointestinal disorder [Unknown]
  - Angiopathy [Unknown]
  - Fistula [Unknown]
  - Pneumonia [Unknown]
  - Poor peripheral circulation [Unknown]
  - Skin atrophy [Unknown]
